FAERS Safety Report 6400127-9 (Version None)
Quarter: 2009Q4

REPORT INFORMATION
  Report Type: 
  Country: None (occurrence: None)
  Receive Date: 20091014
  Receipt Date: 20091002
  Transmission Date: 20100525
  Serious: Yes (Other)
  Sender: FDA-Public Use
  Company Number: CA-JNJFOC-20091001893

PATIENT
  Sex: Female
  Weight: 62.14 kg

DRUGS (19)
  1. REMICADE [Suspect]
     Dosage: 17TH INFUSION, RATE DECREASED/INCREASED PER PROTOCOL, INFUSION COMPLETED
     Route: 042
     Dates: start: 20080307, end: 20091002
  2. REMICADE [Suspect]
     Indication: PSORIASIS
     Route: 042
     Dates: start: 20080307, end: 20091002
  3. LYRICA [Suspect]
     Indication: DRUG USE FOR UNKNOWN INDICATION
  4. ALBUTEROL [Concomitant]
     Route: 055
  5. FLOVENT [Concomitant]
     Route: 055
  6. ATROVENT [Concomitant]
  7. OXAZEPAM [Concomitant]
  8. RATIO-MORPHINE [Concomitant]
  9. RABEPRAZOLE [Concomitant]
  10. VITAMIN D [Concomitant]
  11. LIPITOR [Concomitant]
  12. APO-BISACODYL [Concomitant]
  13. CELEBREX [Concomitant]
  14. GABAPENTIN [Concomitant]
  15. GABAPENTIN [Concomitant]
  16. OXYCONTIN [Concomitant]
  17. NYSTATIN [Concomitant]
  18. DOCUSATE SODIUM [Concomitant]
  19. SENOKOT [Concomitant]

REACTIONS (6)
  - DYSPNOEA [None]
  - FLUSHING [None]
  - HYPOTENSION [None]
  - INFUSION RELATED REACTION [None]
  - MALAISE [None]
  - WEIGHT DECREASED [None]
